FAERS Safety Report 6882350-2 (Version None)
Quarter: 2010Q3

REPORT INFORMATION
  Report Type: 
  Country: None (occurrence: None)
  Receive Date: 20100729
  Receipt Date: 20100412
  Transmission Date: 20110219
  Serious: No
  Sender: FDA-Public Use
  Company Number: US-MYLANLABS-2010S1006337

PATIENT
  Age: 79 Year
  Sex: Female
  Weight: 56.7 kg

DRUGS (10)
  1. AMIODARONE HYDROCHLORIDE [Suspect]
     Indication: HEART RATE IRREGULAR
     Route: 048
     Dates: start: 20100101
  2. PACERONE [Suspect]
     Indication: HEART RATE IRREGULAR
     Route: 048
     Dates: start: 20090101, end: 20100101
  3. LEVOTHYROXINE SODIUM [Suspect]
     Indication: THYROIDECTOMY
     Route: 048
     Dates: start: 20090801
  4. LOVASTATIN [Concomitant]
  5. TENORMIN [Concomitant]
  6. SPIRONOLACTONE [Concomitant]
  7. WARFARIN [Concomitant]
  8. CALCITRIOL [Concomitant]
  9. CALCIUM [Concomitant]
  10. ALENDRONATE SODIUM [Concomitant]

REACTIONS (2)
  - ALOPECIA [None]
  - HAIR GROWTH ABNORMAL [None]
